FAERS Safety Report 9298251 (Version 1)
Quarter: 2013Q2

REPORT INFORMATION
  Report Type: Spontaneous
  Country: US (occurrence: US)
  Receive Date: 20130520
  Receipt Date: 20130520
  Transmission Date: 20140414
  Serious: Yes (Other)
  Sender: FDA-Public Use
  Company Number: US-AMGEN-USASP2013034223

PATIENT
  Sex: 0

DRUGS (17)
  1. FILGRASTIM [Suspect]
     Indication: PROPHYLAXIS
     Dosage: MORE THAN OR EQUAL TO 5 MICROGRAM/KG/DAY
     Route: 065
  2. PEGFILGRASTIM [Suspect]
     Indication: PROPHYLAXIS
     Dosage: 6 MG, ONCE GIVEN 24-72 HOURS AFTER CHEMOTHERAPY
     Route: 065
  3. RITUXIMAB [Suspect]
     Indication: LYMPHOMA
     Dosage: 375 MG/M2 ON ANY DAY DURING DAYS 3, 4 OR 5
     Route: 042
  4. IFOSFAMIDE [Suspect]
     Indication: LYMPHOMA
     Dosage: 5 G/M2, UNK
     Route: 042
  5. CARBOPLATIN [Suspect]
     Indication: LYMPHOMA
     Dosage: AREA UNDER THE CURVE OF 5 (OVER 1 HOUR ON DAY 4)
     Route: 042
  6. ETOPOSIDE [Suspect]
     Indication: LYMPHOMA
     Dosage: 100 MG/M2 OVER 1 HOUR ON DAYS 3-5
     Route: 042
  7. VORINOSTAT [Suspect]
     Indication: LYMPHOMA
     Dosage: 400 MG DAILY TO 700 MG TWICE DAILY (ON DAYS 1-5)
     Route: 048
  8. MESNA [Suspect]
     Indication: LYMPHOMA
     Dosage: 5 G/M2 ON DAY 4
     Route: 042
  9. ONDANSETRON [Concomitant]
     Indication: PROPHYLAXIS OF NAUSEA AND VOMITING
     Dosage: BEFORE EACH DOSE OF VORINOSTAT (8 MG ON DAYS 1, 2, 3, AND EVERY 8 HOURS AS NEEDED)
     Route: 048
  10. ONDANSETRON [Concomitant]
     Indication: PROPHYLAXIS OF NAUSEA AND VOMITING
  11. LOMOTIL [Concomitant]
     Indication: PROPHYLAXIS AGAINST DIARRHOEA
     Dosage: 1 DF, UNK
     Route: 048
  12. LOPERAMIDE [Concomitant]
     Indication: PROPHYLAXIS AGAINST DIARRHOEA
     Dosage: 2 MG, UNK
     Route: 048
  13. PALONOSETRON [Concomitant]
     Indication: PROPHYLAXIS OF NAUSEA AND VOMITING
     Dosage: 0.25 MG, PRIOR TO THE 1ST DOSE OF VORINOSTAT:DAY4)
     Route: 042
  14. PALONOSETRON [Concomitant]
     Indication: PROPHYLAXIS OF NAUSEA AND VOMITING
  15. APREPITANT [Concomitant]
     Indication: PROPHYLAXIS OF NAUSEA AND VOMITING
     Dosage: 125 MG, PRIOR TO THE FIRST DOSE OF VORINOSTAT
     Route: 048
  16. APREPITANT [Concomitant]
     Indication: PROPHYLAXIS OF NAUSEA AND VOMITING
     Dosage: 80 MG, DAILY ON DAYS 5 AND 6
     Route: 048
  17. DEXAMETHASONE [Concomitant]
     Indication: PROPHYLAXIS
     Dosage: TWICE A DAY ON DAYS 5, 6, AND 7 (4 MG)
     Route: 048

REACTIONS (34)
  - Hypophosphataemia [Unknown]
  - Febrile neutropenia [Unknown]
  - Infection [Unknown]
  - Nausea [Unknown]
  - Dehydration [Unknown]
  - Decreased appetite [Unknown]
  - Vomiting [Unknown]
  - Haemorrhoids [Unknown]
  - Hypokalaemia [Unknown]
  - Hyponatraemia [Unknown]
  - Hypocalcaemia [Unknown]
  - Hypercalcaemia [Unknown]
  - Hyperkalaemia [Unknown]
  - Alanine aminotransferase increased [Unknown]
  - Aspartate aminotransferase increased [Unknown]
  - Hypoalbuminaemia [Unknown]
  - Deep vein thrombosis [Unknown]
  - International normalised ratio increased [Unknown]
  - Activated partial thromboplastin time prolonged [Unknown]
  - Fibrin D dimer increased [Unknown]
  - Pain [Unknown]
  - Fatigue [Unknown]
  - Syncope [Unknown]
  - Hallucination [Unknown]
  - Encephalopathy [Unknown]
  - Confusional state [Unknown]
  - Delirium [Unknown]
  - Hypotension [Unknown]
  - Hypoxia [Unknown]
  - Dyspnoea [Unknown]
  - Renal failure acute [Unknown]
  - Ulcer [Unknown]
  - Blood alkaline phosphatase increased [Unknown]
  - Hyperuricaemia [Unknown]
